FAERS Safety Report 4339208-2 (Version None)
Quarter: 2004Q2

REPORT INFORMATION
  Report Type: 
  Country: None (occurrence: None)
  Receive Date: 20040412
  Receipt Date: 20040329
  Transmission Date: 20050107
  Serious: Yes (Other)
  Sender: FDA-Public Use
  Company Number: 2004019765

PATIENT
  Age: 38 Year
  Sex: Female
  Weight: 65.7716 kg

DRUGS (7)
  1. ACCUPRIL [Suspect]
     Indication: BLOOD PRESSURE
  2. NORVASC [Suspect]
     Indication: BLOOD PRESSURE
     Dosage: 10 MG, ORAL
     Route: 048
  3. METOPROLOL SUCCINATE [Suspect]
     Indication: BLOOD PRESSURE
  4. HYDROCHLOROTHIAZIDE [Suspect]
     Indication: BLOOD PRESSURE
     Dosage: 25 MG
     Dates: start: 20021201
  5. CLONIDINE [Concomitant]
  6. ALPRAZOLAM [Concomitant]
  7. OTHER ANTI-ASTHMATICS, INHALANTS (OTHER ANTI-ASTHMATICS, INHALANTS) [Concomitant]

REACTIONS (11)
  - BACK PAIN [None]
  - BLOOD PRESSURE INADEQUATELY CONTROLLED [None]
  - BLOOD PRESSURE INCREASED [None]
  - DRUG INEFFECTIVE [None]
  - FATIGUE [None]
  - FLUSHING [None]
  - KIDNEY INFECTION [None]
  - MEDICATION ERROR [None]
  - MEMORY IMPAIRMENT [None]
  - RENAL PAIN [None]
  - SLEEP DISORDER [None]
